FAERS Safety Report 24332867 (Version 1)
Quarter: 2024Q3

REPORT INFORMATION
  Report Type: Spontaneous
  Country: US (occurrence: None)
  Receive Date: 20240917
  Receipt Date: 20240917
  Transmission Date: 20241017
  Serious: No
  Sender: Public
  Company Number: None

PATIENT
  Age: 67 Year
  Sex: Female

DRUGS (2)
  1. LENALIDOMIDE [Suspect]
     Active Substance: LENALIDOMIDE
     Indication: Plasma cell myeloma
     Dosage: FREQUENCY : DAILY;?
     Route: 048
     Dates: start: 20230809
  2. DARATUMUMAB [Suspect]
     Active Substance: DARATUMUMAB

REACTIONS (3)
  - Dysphagia [None]
  - Rash [None]
  - Drug eruption [None]

NARRATIVE: CASE EVENT DATE: 20240908
